FAERS Safety Report 4981229-0 (Version None)
Quarter: 2006Q1

REPORT INFORMATION
  Report Type: 
  Country: None (occurrence: None)
  Receive Date: 20060227
  Receipt Date: 20050406
  Transmission Date: 20060701
  Serious: Yes (Hospitalization, Disabling)
  Sender: FDA-Public Use
  Company Number: WAES 0504USA00901

PATIENT
  Age: 79 Year
  Sex: Female
  Weight: 53.978 kg

DRUGS (6)
  1. ZOCOR [Suspect]
     Indication: HYPERCHOLESTEROLAEMIA
     Dosage: 40 MG/HS/PO
     Route: 048
     Dates: start: 20050208, end: 20050311
  2. CARDIZEM [Concomitant]
  3. LASIX [Concomitant]
  4. PRINIVIL [Concomitant]
  5. DIGOXIN [Concomitant]
  6. MAGNESIUM OXIDE [Concomitant]

REACTIONS (3)
  - HEPATITIS [None]
  - RENAL FAILURE ACUTE [None]
  - RHABDOMYOLYSIS [None]
